FAERS Safety Report 4931596-9 (Version None)
Quarter: 2006Q1

REPORT INFORMATION
  Report Type: 
  Country: None (occurrence: None)
  Receive Date: 20060303
  Receipt Date: 20060221
  Transmission Date: 20060701
  Serious: Yes (Other)
  Sender: FDA-Public Use
  Company Number: GB-JNJFOC-20060205411

PATIENT
  Sex: Male

DRUGS (3)
  1. RISPERDAL CONSTA [Suspect]
     Indication: SCHIZOPHRENIA
     Route: 030
  2. VALPROATE SODIUM [Concomitant]
  3. ZOPICLONE [Concomitant]
     Dosage: TAKEN PM

REACTIONS (5)
  - BLOOD PRESSURE INCREASED [None]
  - CONSCIOUSNESS FLUCTUATING [None]
  - COORDINATION ABNORMAL [None]
  - HEART RATE INCREASED [None]
  - NYSTAGMUS [None]
